FAERS Safety Report 6248471-2 (Version None)
Quarter: 2009Q2

REPORT INFORMATION
  Report Type: 
  Country: None (occurrence: None)
  Receive Date: 20090629
  Receipt Date: 20090619
  Transmission Date: 20091009
  Serious: Yes (Hospitalization)
  Sender: FDA-Public Use
  Company Number: DE-ROCHE-627858

PATIENT
  Sex: Male
  Weight: 16 kg

DRUGS (2)
  1. CEFTRIAXONE [Suspect]
     Route: 042
     Dates: start: 20090130, end: 20090206
  2. SYMBIOFLOR [Concomitant]
     Route: 048
     Dates: end: 20090222

REACTIONS (1)
  - HEPATITIS CHOLESTATIC [None]
